FAERS Safety Report 14529437 (Version 1)
Quarter: 2018Q1

REPORT INFORMATION
  Report Type: Spontaneous
  Country: US (occurrence: US)
  Receive Date: 20180214
  Receipt Date: 20180214
  Transmission Date: 20180509
  Serious: No
  Sender: FDA-Public Use
  Company Number: US-ALKEM LABORATORIES LIMITED-US-ALKEM-2017-00380

PATIENT
  Age: 48 Year
  Sex: Female

DRUGS (1)
  1. GABAPENTIN. [Suspect]
     Active Substance: GABAPENTIN
     Indication: PRODUCT USED FOR UNKNOWN INDICATION
     Dosage: 1500 MG, QD

REACTIONS (6)
  - Asthenia [Recovered/Resolved]
  - Vomiting [Recovered/Resolved]
  - Lethargy [Recovered/Resolved]
  - Nystagmus [Recovered/Resolved]
  - Nausea [Recovered/Resolved]
  - Toxicity to various agents [Recovered/Resolved]
